FAERS Safety Report 9265244 (Version 1)
Quarter: 2013Q2

REPORT INFORMATION
  Report Type: Spontaneous
  Country: DE (occurrence: DE)
  Receive Date: 20130501
  Receipt Date: 20130501
  Transmission Date: 20140414
  Serious: Yes (Hospitalization)
  Sender: FDA-Public Use
  Company Number: DE-SANOFI-AVENTIS-2013SA043031

PATIENT
  Age: 51 Year
  Sex: 0

DRUGS (1)
  1. ZOLPIDEM TARTRATE [Suspect]
     Indication: PRODUCT USED FOR UNKNOWN INDICATION
     Route: 065

REACTIONS (4)
  - Somnolence [Recovering/Resolving]
  - Overdose [Unknown]
  - Injury [Recovering/Resolving]
  - Wound [Recovering/Resolving]
